FAERS Safety Report 9223400 (Version 2)
Quarter: 2013Q2

REPORT INFORMATION
  Report Type: Report from Study
  Country: JP (occurrence: JP)
  Receive Date: 20130410
  Receipt Date: 20130501
  Transmission Date: 20140414
  Serious: Yes (Hospitalization)
  Sender: FDA-Public Use
  Company Number: JP-ROCHE-1209063

PATIENT
  Age: 72 Year
  Sex: Male
  Weight: 56 kg

DRUGS (11)
  1. CAPECITABINE [Suspect]
     Indication: GASTRIC CANCER
     Route: 048
     Dates: start: 20121031
  2. CAPECITABINE [Suspect]
     Dosage: DOSE REDUCED AND 6 TH CYLE WAS COMPLETED
     Route: 048
     Dates: start: 20130205, end: 20130312
  3. OXALIPLATIN [Suspect]
     Indication: GASTRIC CANCER
     Route: 042
     Dates: start: 20121031
  4. OXALIPLATIN [Suspect]
     Route: 042
     Dates: start: 20130205
  5. PLAVIX [Concomitant]
     Indication: CEREBRAL INFARCTION
     Route: 048
     Dates: start: 20101001
  6. DIOVAN [Concomitant]
     Indication: CEREBRAL INFARCTION
     Route: 048
     Dates: start: 20100924
  7. HIRUDOID [Concomitant]
     Indication: PALMAR-PLANTAR ERYTHRODYSAESTHESIA SYNDROME
     Route: 062
     Dates: start: 20121121, end: 20130409
  8. HIRUDOID [Concomitant]
     Indication: PALMAR-PLANTAR ERYTHRODYSAESTHESIA SYNDROME
     Route: 062
     Dates: start: 20121031, end: 20130409
  9. ALPRAZOLAM [Concomitant]
     Indication: NAUSEA
     Route: 048
     Dates: start: 20130324
  10. PERAPRIN [Concomitant]
     Indication: ABDOMINAL PAIN UPPER
     Route: 048
     Dates: start: 20130319, end: 20130325
  11. POLAPREZINC [Concomitant]
     Indication: ABDOMINAL PAIN UPPER
     Route: 048
     Dates: start: 20130319, end: 20130325

REACTIONS (1)
  - Memory impairment [Recovering/Resolving]
